FAERS Safety Report 17704607 (Version 3)
Quarter: 2020Q3

REPORT INFORMATION
  Report Type: Spontaneous
  Country: US (occurrence: US)
  Receive Date: 20200424
  Receipt Date: 20200723
  Transmission Date: 20201102
  Serious: No
  Sender: FDA-Public Use
  Company Number: US-009507513-2004USA003681

PATIENT
  Age: 73 Year
  Sex: Female

DRUGS (2)
  1. ATORVASTATIN [Concomitant]
     Active Substance: ATORVASTATIN
     Dosage: UNK
  2. KEYTRUDA [Suspect]
     Active Substance: PEMBROLIZUMAB
     Indication: NON-SMALL CELL LUNG CANCER
     Dosage: 200 MILLIGRAM, EVERY 3 WEEKS
     Route: 042
     Dates: start: 20200319

REACTIONS (6)
  - Burning sensation [Recovered/Resolved]
  - Chest pain [Recovered/Resolved]
  - Hepatic enzyme increased [Unknown]
  - Breast pain [Recovered/Resolved]
  - Weight increased [Recovering/Resolving]
  - Intercepted product administration error [Unknown]

NARRATIVE: CASE EVENT DATE: 202003
